FAERS Safety Report 5010806-6 (Version None)
Quarter: 2006Q2

REPORT INFORMATION
  Report Type: 
  Country: None (occurrence: None)
  Receive Date: 20060523
  Receipt Date: 20060512
  Transmission Date: 20061013
  Serious: Yes (Other)
  Sender: FDA-Public Use
  Company Number: 2006064626

PATIENT
  Sex: Female

DRUGS (1)
  1. DEPO-PROVERA [Suspect]
     Indication: ILL-DEFINED DISORDER
     Dosage: ONLY 2 SHOTS ADMINISTERED
     Dates: start: 20020101

REACTIONS (4)
  - AMENORRHOEA [None]
  - DEPRESSION [None]
  - INFERTILITY FEMALE [None]
  - MUSCLE SPASMS [None]
